FAERS Safety Report 8962554 (Version 1)
Quarter: 2012Q4

REPORT INFORMATION
  Report Type: 
  Country: US (occurrence: US)
  Receive Date: 20121213
  Receipt Date: 20121213
  Transmission Date: 20130627
  Serious: No
  Sender: FDA-Public Use
  Company Number: US-ASTRAZENECA-2012SE52500

PATIENT
  Age: 71 Year
  Sex: Female

DRUGS (3)
  1. SYMBICORT PMDI [Suspect]
     Dosage: ONE PUFF EVERY 12 HOURS
     Route: 055
  2. SYMBICORT PMDI [Suspect]
     Dosage: TWO PUFFS TWO TIMES A DAY
     Route: 055
  3. TOPROL XL [Suspect]
     Route: 048

REACTIONS (2)
  - Oedema peripheral [Unknown]
  - Intentional drug misuse [Unknown]
